FAERS Safety Report 4836024-X (Version None)
Quarter: 2005Q4

REPORT INFORMATION
  Report Type: 
  Country: None (occurrence: None)
  Receive Date: 20051123
  Receipt Date: 20051004
  Transmission Date: 20060501
  Serious: Yes (Hospitalization, Other)
  Sender: FDA-Public Use
  Company Number: US-MERCK-0510USA02267

PATIENT
  Age: 61 Year
  Sex: Female
  Weight: 111 kg

DRUGS (8)
  1. VIOXX [Suspect]
     Indication: ARTHRITIS
     Route: 048
     Dates: start: 20000218, end: 20040901
  2. VIOXX [Suspect]
     Route: 048
     Dates: start: 20040120
  3. ALBUTEROL [Concomitant]
     Route: 065
  4. SULFATRIM [Concomitant]
     Route: 065
  5. PHENAZOPYRIDINE HYDROCHLORIDE [Concomitant]
     Route: 065
  6. POTASSIUM CHLORIDE [Concomitant]
     Route: 065
  7. CIPROFLOXACIN [Concomitant]
     Route: 065
  8. BELLAMINE S [Concomitant]
     Route: 065

REACTIONS (12)
  - ATRIAL FIBRILLATION [None]
  - CEREBROVASCULAR ACCIDENT [None]
  - FALL [None]
  - HYPERTENSION [None]
  - MENISCUS LESION [None]
  - MIGRAINE [None]
  - MYOCARDIAL INFARCTION [None]
  - OEDEMA [None]
  - PITTING OEDEMA [None]
  - SOMNOLENCE [None]
  - THROMBOSIS [None]
  - TRANSIENT ISCHAEMIC ATTACK [None]
